FAERS Safety Report 6534437-1 (Version None)
Quarter: 2010Q1

REPORT INFORMATION
  Report Type: 
  Country: None (occurrence: None)
  Receive Date: 20100112
  Receipt Date: 20100106
  Transmission Date: 20100710
  Serious: Yes (Hospitalization)
  Sender: FDA-Public Use
  Company Number: DE-AMGEN-US384477

PATIENT
  Age: 58 Year
  Sex: Female

DRUGS (1)
  1. ENBREL [Suspect]
     Indication: PSORIATIC ARTHROPATHY
     Route: 058
     Dates: start: 20090218

REACTIONS (5)
  - ANURIA [None]
  - CONDITION AGGRAVATED [None]
  - PAIN [None]
  - PSORIATIC ARTHROPATHY [None]
  - SCAR [None]
